FAERS Safety Report 6928396-7 (Version None)
Quarter: 2010Q3

REPORT INFORMATION
  Report Type: 
  Country: None (occurrence: None)
  Receive Date: 20100810
  Receipt Date: 20100727
  Transmission Date: 20110219
  Serious: Yes (Death, Life-Threatening, Hospitalization, Other)
  Sender: FDA-Public Use
  Company Number: 2010AC000280

PATIENT
  Age: 89 Year
  Sex: Female

DRUGS (17)
  1. DIGOXIN [Suspect]
     Dosage: PO, 0.125 MG;QD;PO
     Route: 048
     Dates: start: 20080128, end: 20080507
  2. DIGOXIN [Suspect]
     Dosage: PO, 0.125 MG;QD;PO
     Route: 048
     Dates: start: 20060301, end: 20080601
  3. CALCIUM WITH D [Concomitant]
  4. POTASSIUM [Concomitant]
  5. MULTI-VITAMIN [Concomitant]
  6. NEURONTIN [Concomitant]
  7. TOPROL-XL [Concomitant]
  8. VYTORIN [Concomitant]
  9. AMBIEN [Concomitant]
  10. ASPIRIN [Concomitant]
  11. GLUCOTROL [Concomitant]
  12. INSULIN [Concomitant]
  13. IMDUR [Concomitant]
  14. LASIX [Concomitant]
  15. PREDNISONE [Concomitant]
  16. ZOLOFT [Concomitant]
  17. ACETAMINOPHEN [Concomitant]

REACTIONS (15)
  - ANXIETY [None]
  - AORTIC ARTERIOSCLEROSIS [None]
  - ASTHENIA [None]
  - BLOOD GLUCOSE DECREASED [None]
  - CARDIAC FAILURE CONGESTIVE [None]
  - CLOSTRIDIUM DIFFICILE COLITIS [None]
  - DECREASED APPETITE [None]
  - ECONOMIC PROBLEM [None]
  - GAIT DISTURBANCE [None]
  - HYPOTENSION [None]
  - MULTIPLE INJURIES [None]
  - PAIN [None]
  - PULMONARY HYPERTENSION [None]
  - RENAL FAILURE ACUTE [None]
  - THERAPEUTIC AGENT TOXICITY [None]
